FAERS Safety Report 7070231-3 (Version None)
Quarter: 2010Q4

REPORT INFORMATION
  Report Type: 
  Country: None (occurrence: None)
  Receive Date: 20101028
  Receipt Date: 20100921
  Transmission Date: 20110411
  Serious: No
  Sender: FDA-Public Use
  Company Number: US-WYE-H17672610

PATIENT
  Age: 34 Year
  Sex: Male
  Weight: 77.18 kg

DRUGS (1)
  1. ADVIL [Suspect]
     Indication: ANALGESIC THERAPY
     Route: 048
     Dates: start: 20100920, end: 20100920

REACTIONS (1)
  - ABDOMINAL PAIN UPPER [None]
